FAERS Safety Report 8071956-3 (Version None)
Quarter: 2012Q1

REPORT INFORMATION
  Report Type: 
  Country: None (occurrence: None)
  Receive Date: 20120126
  Receipt Date: 20120118
  Transmission Date: 20120608
  Serious: Yes (Hospitalization, Other)
  Sender: FDA-Public Use
  Company Number: US-BAYER-2011-077214

PATIENT
  Age: 31 Year
  Sex: Female
  Weight: 76.644 kg

DRUGS (8)
  1. ZYRTEC [Concomitant]
  2. ZALEPLON [Concomitant]
  3. YAZ [Suspect]
     Indication: CONTRACEPTION
     Dosage: UNK
     Dates: start: 20071210, end: 20110601
  4. YAZ [Suspect]
     Indication: PREMENSTRUAL SYNDROME
  5. VAZOBID [Concomitant]
  6. PONSTEL [Concomitant]
  7. PANTOPRAZOLE [Concomitant]
  8. PROPRANOLOL [Concomitant]

REACTIONS (3)
  - CHOLECYSTITIS CHRONIC [None]
  - CHOLELITHIASIS [None]
  - GALLBLADDER DISORDER [None]
